FAERS Safety Report 6587722-1 (Version None)
Quarter: 2010Q1

REPORT INFORMATION
  Report Type: 
  Country: None (occurrence: None)
  Receive Date: 20100218
  Receipt Date: 20091222
  Transmission Date: 20100710
  Serious: No
  Sender: FDA-Public Use
  Company Number: A0836431A

PATIENT
  Sex: Female

DRUGS (1)
  1. COREG CR [Suspect]
     Indication: HYPERTENSION
     Dosage: 40MG PER DAY
     Route: 048
     Dates: start: 20090601

REACTIONS (4)
  - CHEST PAIN [None]
  - DIARRHOEA [None]
  - DYSPEPSIA [None]
  - FATIGUE [None]
